FAERS Safety Report 8166468-2 (Version None)
Quarter: 2012Q1

REPORT INFORMATION
  Report Type: 
  Country: None (occurrence: None)
  Receive Date: 20120227
  Receipt Date: 20111011
  Transmission Date: 20120608
  Serious: No
  Sender: FDA-Public Use
  Company Number: US-MYLANLABS-2011S1017878

PATIENT
  Age: 16 Year
  Sex: Female
  Weight: 56 kg

DRUGS (3)
  1. AMNESTEEM [Suspect]
     Route: 048
  2. AMNESTEEM [Suspect]
     Indication: ACNE
     Route: 048
  3. CLARAVIS [Suspect]
     Indication: ACNE
     Route: 048

REACTIONS (3)
  - DRY SKIN [None]
  - PHOTOSENSITIVITY REACTION [None]
  - LIP DRY [None]
